FAERS Safety Report 12584312 (Version 2)
Quarter: 2016Q3

REPORT INFORMATION
  Report Type: Spontaneous
  Country: US (occurrence: US)
  Receive Date: 20160722
  Receipt Date: 20160825
  Transmission Date: 20161109
  Serious: Yes (Hospitalization)
  Sender: FDA-Public Use
  Company Number: US-TEVA-677549USA

PATIENT
  Sex: Female

DRUGS (2)
  1. PROCARDIAL XL [Concomitant]
     Indication: HYPERTENSION
     Dosage: 60 MILLIGRAM DAILY;
  2. CLARITHROMYCIN. [Suspect]
     Active Substance: CLARITHROMYCIN
     Route: 065

REACTIONS (2)
  - Blood pressure decreased [Unknown]
  - Uterine leiomyoma [Recovered/Resolved]
